FAERS Safety Report 12444703 (Version 1)
Quarter: 2016Q2

REPORT INFORMATION
  Report Type: Spontaneous
  Country: DE (occurrence: DE)
  Receive Date: 20160607
  Receipt Date: 20160607
  Transmission Date: 20160815
  Serious: Yes (Hospitalization, Other)
  Sender: FDA-Public Use
  Company Number: DE-ACTAVIS-2016-11504

PATIENT
  Age: 46 Year
  Sex: Male

DRUGS (1)
  1. CARBAMAZEPINE (UNKNOWN) [Suspect]
     Active Substance: CARBAMAZEPINE
     Indication: PRODUCT USED FOR UNKNOWN INDICATION
     Dosage: 10 DF, SINGLE (ABOUT 3500 MG TOTAL)
     Route: 048

REACTIONS (7)
  - Overdose [Unknown]
  - Accident [Unknown]
  - Hyperchromic anaemia [Unknown]
  - Cerebellar syndrome [Unknown]
  - Epilepsy [Unknown]
  - Rhabdomyolysis [Unknown]
  - Facial bones fracture [Unknown]
